FAERS Safety Report 17309741 (Version 1)
Quarter: 2020Q1

REPORT INFORMATION
  Report Type: Spontaneous
  Country: US (occurrence: US)
  Receive Date: 20200123
  Receipt Date: 20200123
  Transmission Date: 20200409
  Serious: No
  Sender: FDA-Public Use
  Company Number: US-ARRAY-2020-07185

PATIENT

DRUGS (2)
  1. BRAFTOVI [Suspect]
     Active Substance: ENCORAFENIB
     Indication: LUNG NEOPLASM MALIGNANT
     Dosage: UNK UNK, QD
     Dates: start: 201910
  2. MEKTOVI [Suspect]
     Active Substance: BINIMETINIB
     Indication: LUNG NEOPLASM MALIGNANT
     Dosage: UNK UNK, BID
     Dates: start: 201910

REACTIONS (2)
  - Drug ineffective [Unknown]
  - Product use in unapproved indication [Unknown]

NARRATIVE: CASE EVENT DATE: 201910
